FAERS Safety Report 8277127-X (Version None)
Quarter: 2012Q2

REPORT INFORMATION
  Report Type: 
  Country: None (occurrence: None)
  Receive Date: 20120412
  Receipt Date: 20120403
  Transmission Date: 20120825
  Serious: Yes (Hospitalization, Other)
  Sender: FDA-Public Use
  Company Number: US-ASTRAZENECA-2010SE30256

PATIENT
  Age: 56 Year
  Sex: Male
  Weight: 75.7 kg

DRUGS (5)
  1. SEROQUEL [Suspect]
     Indication: INSOMNIA
     Route: 048
     Dates: start: 20090101, end: 20100701
  2. XANAX [Concomitant]
     Indication: INSOMNIA
  3. OXYCONTIN [Concomitant]
     Indication: BACK PAIN
  4. SEROQUEL [Suspect]
     Route: 048
     Dates: start: 20090101, end: 20100701
  5. MORPHINE [Concomitant]
     Indication: BACK PAIN

REACTIONS (13)
  - INSOMNIA [None]
  - RENAL CYST [None]
  - AORTIC ANEURYSM [None]
  - VOMITING [None]
  - INTENTIONAL DRUG MISUSE [None]
  - CONFUSIONAL STATE [None]
  - BACK DISORDER [None]
  - OFF LABEL USE [None]
  - RED BLOOD CELL COUNT DECREASED [None]
  - WHITE BLOOD CELL COUNT DECREASED [None]
  - DRUG EFFECT DECREASED [None]
  - AMMONIA ABNORMAL [None]
  - PLATELET COUNT DECREASED [None]
